FAERS Safety Report 8887494 (Version 1)
Quarter: 2012Q4

REPORT INFORMATION
  Report Type: Spontaneous
  Country: US (occurrence: None)
  Receive Date: 20121101
  Receipt Date: 20121101
  Transmission Date: 20130627
  Serious: Yes (Hospitalization)
  Sender: FDA-Public Use
  Company Number: None

PATIENT
  Age: 81 Year
  Sex: Female
  Weight: 61.4 kg

DRUGS (14)
  1. COUMADIN [Suspect]
     Indication: ATRIAL FIBRILLATION
     Dosage: 5 MG SSTWF PO
     Route: 048
  2. COUMADIN [Suspect]
     Indication: ATRIAL FIBRILLATION
     Route: 048
  3. FOLIC ACID [Concomitant]
  4. LASIX [Concomitant]
  5. ALLEGRA [Concomitant]
  6. PREDNISONE [Concomitant]
  7. POTASSIUM CHLORIDE [Concomitant]
  8. METHOTREXATE [Concomitant]
  9. DIGOXIN [Concomitant]
  10. MVI [Concomitant]
  11. CA+D [Concomitant]
  12. FISH OIL [Concomitant]
  13. COLACE [Concomitant]
  14. MORPHINE [Concomitant]

REACTIONS (8)
  - Arthralgia [None]
  - Syncope [None]
  - Haematoma [None]
  - Ecchymosis [None]
  - Limb injury [None]
  - International normalised ratio increased [None]
  - Haemorrhagic anaemia [None]
  - Atrial fibrillation [None]
